FAERS Safety Report 4391616-X (Version None)
Quarter: 2004Q3

REPORT INFORMATION
  Report Type: 
  Country: None (occurrence: None)
  Receive Date: 20040701
  Receipt Date: 20040610
  Transmission Date: 20050211
  Serious: Yes (Other)
  Sender: FDA-Public Use
  Company Number: USA040669890

PATIENT
  Age: 62 Year
  Sex: Female
  Weight: 55 kg

DRUGS (4)
  1. HUMULIN N [Suspect]
     Indication: DIABETES MELLITUS
     Dosage: 26 U DAY
     Dates: start: 19800101
  2. HUMULIN R [Suspect]
     Indication: DIABETES MELLITUS
     Dosage: 9 U DAY
     Dates: start: 19800101
  3. HUMALOG [Suspect]
     Indication: DIABETES MELLITUS
  4. INSULIN [Suspect]
     Indication: DIABETES MELLITUS
     Dates: end: 19800101

REACTIONS (5)
  - BLOOD GLUCOSE FLUCTUATION [None]
  - DRUG INEFFECTIVE [None]
  - FEELING ABNORMAL [None]
  - NAUSEA [None]
  - TRANSIENT ISCHAEMIC ATTACK [None]
